FAERS Safety Report 6030558-0 (Version None)
Quarter: 2008Q4

REPORT INFORMATION
  Report Type: 
  Country: None (occurrence: None)
  Receive Date: 20081201
  Receipt Date: 20081201
  Transmission Date: 20090506
  Serious: Yes (Hospitalization)
  Sender: FDA-Public Use
  Company Number: None

PATIENT
  Age: 7 Month
  Sex: Female
  Weight: 7.4 kg

DRUGS (1)
  1. HYLANDS HOMEOPATHIC HYLAND'S INC [Suspect]
     Indication: TEETHING
     Dosage: 22 TABLETS MISSING FROM BOTTLE
     Dates: start: 20081001, end: 20081008

REACTIONS (1)
  - ANTICHOLINERGIC SYNDROME [None]
